FAERS Safety Report 8988227 (Version 2)
Quarter: 2013Q1

REPORT INFORMATION
  Report Type: Spontaneous
  Country: US (occurrence: US)
  Receive Date: 20121227
  Receipt Date: 20130314
  Transmission Date: 20140127
  Serious: Yes (Death, Hospitalization, Other)
  Sender: FDA-Public Use
  Company Number: US-ASTELLAS-2012US012709

PATIENT
  Age: 55 None
  Sex: Male

DRUGS (3)
  1. PROGRAF [Suspect]
     Indication: RENAL TRANSPLANT
     Dosage: 1.5 MG, UID/QD
     Route: 048
     Dates: start: 20090128, end: 20121201
  2. PROGRAF [Suspect]
     Dosage: 1 MG, BID
     Route: 048
     Dates: start: 201108
  3. PROGRAF [Suspect]
     Dosage: 1 MG, 3XWEEKLY
     Route: 048
     Dates: start: 201211

REACTIONS (18)
  - Haemochromatosis [Fatal]
  - Chronic hepatic failure [Unknown]
  - Hepatic cirrhosis [Unknown]
  - Hypersplenism [Unknown]
  - Glaucoma [Unknown]
  - Diabetes mellitus [Unknown]
  - Pancytopenia [Recovering/Resolving]
  - Activated partial thromboplastin time prolonged [Unknown]
  - Anaemia [Recovering/Resolving]
  - Gastrointestinal haemorrhage [Recovering/Resolving]
  - Thrombocytopenia [Recovering/Resolving]
  - Peripheral vascular disorder [Unknown]
  - Urinary retention [Unknown]
  - Ascites [Unknown]
  - Depression [Unknown]
  - Constipation [Unknown]
  - Gastrooesophageal reflux disease [Unknown]
  - Hypercholesterolaemia [Unknown]
